FAERS Safety Report 18275417 (Version 1)
Quarter: 2020Q3

REPORT INFORMATION
  Report Type: Report from Study
  Country: US (occurrence: US)
  Receive Date: 20200917
  Receipt Date: 20200917
  Transmission Date: 20201103
  Serious: Yes (Death)
  Sender: FDA-Public Use
  Company Number: US-ASTRAZENECA-2020SF18005

PATIENT
  Sex: Male
  Weight: 63.5 kg

DRUGS (2)
  1. NEULASTA [Concomitant]
     Active Substance: PEGFILGRASTIM
  2. LYNPARZA [Suspect]
     Active Substance: OLAPARIB
     Indication: KAPOSI^S SARCOMA
     Route: 048
     Dates: start: 20200805

REACTIONS (1)
  - Death [Fatal]
